FAERS Safety Report 20747720 (Version 1)
Quarter: 2022Q2

REPORT INFORMATION
  Report Type: Spontaneous
  Country: US (occurrence: US)
  Receive Date: 20220425
  Receipt Date: 20220425
  Transmission Date: 20220721
  Serious: No
  Sender: FDA-Public Use
  Company Number: US-SANOFI-01069388

PATIENT
  Age: 70 Year
  Sex: Female

DRUGS (1)
  1. DUPIXENT [Suspect]
     Active Substance: DUPILUMAB
     Indication: Dermatitis atopic
     Dosage: DRUG STRUCTURE DOSAGE : UNKNOWN DRUG INTERVAL DOSAGE : EVERY TWO WEEKS DRUG TREATMENT DURATION:

REACTIONS (2)
  - Dermatitis atopic [Unknown]
  - Therapy cessation [Unknown]
